FAERS Safety Report 13269216 (Version 7)
Quarter: 2018Q1

REPORT INFORMATION
  Report Type: Report from Study
  Country: DE (occurrence: DE)
  Receive Date: 20170224
  Receipt Date: 20180202
  Transmission Date: 20180508
  Serious: Yes (Other)
  Sender: FDA-Public Use
  Company Number: DE-SA-2017SA022508

PATIENT
  Age: 41 Year
  Sex: Female

DRUGS (1)
  1. LEMTRADA [Suspect]
     Active Substance: ALEMTUZUMAB
     Indication: MULTIPLE SCLEROSIS
     Route: 041
     Dates: start: 20170130, end: 20170203

REACTIONS (9)
  - Immune thrombocytopenic purpura [Unknown]
  - Vomiting [Recovered/Resolved]
  - Pain in extremity [Not Recovered/Not Resolved]
  - Oropharyngeal pain [Unknown]
  - Hypokinesia [Not Recovered/Not Resolved]
  - Headache [Recovering/Resolving]
  - Fatigue [Recovering/Resolving]
  - Nasopharyngitis [Recovering/Resolving]
  - Extravasation [Recovered/Resolved]

NARRATIVE: CASE EVENT DATE: 20170130
